FAERS Safety Report 21852588 (Version 1)
Quarter: 2023Q1

REPORT INFORMATION
  Report Type: Spontaneous
  Country: US (occurrence: None)
  Receive Date: 20230111
  Receipt Date: 20230111
  Transmission Date: 20230417
  Serious: No
  Sender: FDA-Public Use
  Company Number: None

PATIENT
  Age: 73 Year
  Sex: Male
  Weight: 78.52 kg

DRUGS (24)
  1. LENALIDOMIDE [Suspect]
     Active Substance: LENALIDOMIDE
     Indication: Plasma cell myeloma
     Dosage: 15MG 21D ON 7D OFF ORAL?
     Route: 048
  2. ACYCLOVIR [Concomitant]
     Active Substance: ACYCLOVIR
  3. ALLOPURINOL [Concomitant]
     Active Substance: ALLOPURINOL
  4. AMMONIUM [Concomitant]
  5. BETAMETHASONE [Concomitant]
     Active Substance: BETAMETHASONE
  6. BUDESONIDE\FORMOTEROL [Concomitant]
     Active Substance: BUDESONIDE\FORMOTEROL
  7. CALCIUM CARBONATE\VITAMIN D [Concomitant]
     Active Substance: CALCIUM CARBONATE\VITAMIN D
  8. CARVEDILOL [Concomitant]
     Active Substance: CARVEDILOL
  9. CYANOCOBALAMIN [Concomitant]
     Active Substance: CYANOCOBALAMIN
  10. ELIQUIS [Concomitant]
     Active Substance: APIXABAN
  11. FLOVENT HFA [Concomitant]
     Active Substance: FLUTICASONE PROPIONATE
  12. GLYCERIN-HYPROMELLOSE-PEG [Concomitant]
  13. HYDROCORTISONE [Concomitant]
     Active Substance: HYDROCORTISONE
  14. KETOCONAZOLE [Concomitant]
     Active Substance: KETOCONAZOLE
  15. LATANOPROST [Concomitant]
     Active Substance: LATANOPROST
  16. LINACLOTIDE [Concomitant]
     Active Substance: LINACLOTIDE
  17. LOSARTAN [Concomitant]
     Active Substance: LOSARTAN
  18. MONTELUKST [Concomitant]
  19. OXYBUTYNIN [Concomitant]
     Active Substance: OXYBUTYNIN
  20. PANTOPRAZOLE [Concomitant]
     Active Substance: PANTOPRAZOLE
  21. VITAMIN B12 [Concomitant]
     Active Substance: CYANOCOBALAMIN
  22. RIVASTIGMINE [Concomitant]
     Active Substance: RIVASTIGMINE
  23. ROSUVASTATIN [Concomitant]
     Active Substance: ROSUVASTATIN
  24. TAMSULOSIN [Concomitant]
     Active Substance: TAMSULOSIN

REACTIONS (2)
  - White blood cell count decreased [None]
  - Platelet count decreased [None]
